FAERS Safety Report 9744837 (Version 2)
Quarter: 2014Q1

REPORT INFORMATION
  Report Type: Spontaneous
  Country: IT (occurrence: IT)
  Receive Date: 20131211
  Receipt Date: 20140218
  Transmission Date: 20141002
  Serious: Yes (Other)
  Sender: FDA-Public Use
  Company Number: IT-ROCHE-1316673

PATIENT
  Age: 74 Year
  Sex: Male

DRUGS (1)
  1. RIVOTRIL [Suspect]
     Indication: MYALGIA
     Route: 048
     Dates: start: 20131109, end: 20131109

REACTIONS (2)
  - Overdose [Unknown]
  - Road traffic accident [Unknown]
